FAERS Safety Report 22104658 (Version 2)
Quarter: 2025Q1

REPORT INFORMATION
  Report Type: Spontaneous
  Country: PT (occurrence: PT)
  Receive Date: 20230316
  Receipt Date: 20250121
  Transmission Date: 20250409
  Serious: Yes (Hospitalization, Other)
  Sender: VERTEX
  Company Number: PT-VERTEX PHARMACEUTICALS-2023-003967

PATIENT

DRUGS (1)
  1. ELEXACAFTOR\IVACAFTOR\TEZACAFTOR [Suspect]
     Active Substance: ELEXACAFTOR\IVACAFTOR\TEZACAFTOR
     Indication: Cystic fibrosis
     Route: 048

REACTIONS (28)
  - Hepatitis acute [Unknown]
  - Brain fog [Unknown]
  - Memory impairment [Unknown]
  - Insomnia [Unknown]
  - Speech disorder [Unknown]
  - Anxiety [Unknown]
  - Cognitive disorder [Unknown]
  - Hypertension [Unknown]
  - Infective pulmonary exacerbation of cystic fibrosis [Unknown]
  - Visual impairment [Unknown]
  - Sensory disturbance [Unknown]
  - Paraesthesia [Unknown]
  - Depression [Unknown]
  - Dysphoria [Unknown]
  - Depersonalisation/derealisation disorder [Unknown]
  - Bipolar disorder [Unknown]
  - Testicular pain [Unknown]
  - Chalazion [Unknown]
  - Bartholinitis [Unknown]
  - Wheezing [Unknown]
  - Tonsillitis [Unknown]
  - Hepatic enzyme increased [Recovered/Resolved]
  - Blood creatine phosphokinase increased [Unknown]
  - Blood bilirubin increased [Unknown]
  - Rash [Unknown]
  - Abdominal pain upper [Unknown]
  - Headache [Unknown]
  - Diarrhoea [Unknown]
